FAERS Safety Report 8257031-3 (Version None)
Quarter: 2012Q2

REPORT INFORMATION
  Report Type: 
  Country: None (occurrence: None)
  Receive Date: 20120403
  Receipt Date: 20120326
  Transmission Date: 20120825
  Serious: Yes (Death)
  Sender: FDA-Public Use
  Company Number: US-GLAXOSMITHKLINE-A0971934A

PATIENT
  Age: 64 Year
  Sex: Female

DRUGS (4)
  1. DEXAMETHASONE [Concomitant]
  2. TYKERB [Suspect]
     Indication: BREAST CANCER
     Dosage: 1250MG PER DAY
     Route: 048
     Dates: start: 20120106
  3. M.V.I. [Concomitant]
  4. LOTREL [Concomitant]

REACTIONS (1)
  - DEATH [None]
